FAERS Safety Report 5761304-3 (Version None)
Quarter: 2008Q2

REPORT INFORMATION
  Report Type: 
  Country: None (occurrence: None)
  Receive Date: 20080606
  Receipt Date: 20080530
  Transmission Date: 20081010
  Serious: Yes (Other)
  Sender: FDA-Public Use
  Company Number: GB-MERCK-0801GBR00061

PATIENT
  Age: 54 Year
  Sex: Female

DRUGS (4)
  1. ZOCOR [Suspect]
     Route: 048
     Dates: start: 20061201
  2. CLOBAZAM [Suspect]
     Route: 065
  3. INSULIN, BIPHASIC ISOPHANE [INJECTION] [Concomitant]
     Route: 065
  4. VALPROATE SODIUM [Suspect]
     Route: 065

REACTIONS (2)
  - CONVULSION [None]
  - DRUG INTERACTION [None]
